FAERS Safety Report 8026522-2 (Version None)
Quarter: 2012Q1

REPORT INFORMATION
  Report Type: 
  Country: None (occurrence: None)
  Receive Date: 20120106
  Receipt Date: 20120102
  Transmission Date: 20120608
  Serious: Yes (Other)
  Sender: FDA-Public Use
  Company Number: GB-ACCORD-011888

PATIENT
  Age: 62 Year
  Sex: Male

DRUGS (2)
  1. ETOPOSIDE [Suspect]
     Dosage: ON DAY 1 AND 100 MG/M2 ORAL TWICE DAILY ON DAY 2 AND 3
     Route: 042
  2. CARBOPLATIN [Suspect]
     Dosage: AUC 5 ON DAY 1
     Route: 042

REACTIONS (4)
  - OLIGURIA [None]
  - INTESTINAL DILATATION [None]
  - HYPOTENSION [None]
  - SMALL INTESTINAL OBSTRUCTION [None]
